FAERS Safety Report 8414921-6 (Version None)
Quarter: 2012Q2

REPORT INFORMATION
  Report Type: 
  Country: None (occurrence: None)
  Receive Date: 20120601
  Receipt Date: 20120601
  Transmission Date: 20120825
  Serious: Yes (Life-Threatening)
  Sender: FDA-Public Use
  Company Number: None

PATIENT
  Age: 4 Year
  Sex: Male
  Weight: 18.1439 kg

DRUGS (1)
  1. SINGULAIR [Suspect]
     Indication: ASTHMA
     Dosage: 4MG 1 A DAY PO
     Route: 048
     Dates: start: 20120301, end: 20120531

REACTIONS (7)
  - ANXIETY [None]
  - UNEVALUABLE EVENT [None]
  - MOOD SWINGS [None]
  - AGGRESSION [None]
  - INSOMNIA [None]
  - ANGER [None]
  - AGITATION [None]
